FAERS Safety Report 14880685 (Version 1)
Quarter: 2018Q2

REPORT INFORMATION
  Report Type: Spontaneous
  Country: US (occurrence: US)
  Receive Date: 20180425
  Receipt Date: 20180425
  Transmission Date: 20180711
  Serious: Yes (Other)
  Sender: FDA-Public Use
  Company Number: None

PATIENT
  Age: 65 Year
  Sex: Female
  Weight: 56.25 kg

DRUGS (3)
  1. VITAMIN D3 [Concomitant]
     Active Substance: CHOLECALCIFEROL
  2. PROLIA [Suspect]
     Active Substance: DENOSUMAB
     Indication: OSTEOPOROSIS
     Dosage: ?          OTHER STRENGTH:1;QUANTITY:1 1;OTHER FREQUENCY:UNKNOWN;?
     Route: 058
     Dates: start: 20171229, end: 20180109
  3. PROBIOTIC [Concomitant]
     Active Substance: PROBIOTICS NOS

REACTIONS (5)
  - Fall [None]
  - Hypoaesthesia [None]
  - Asthenia [None]
  - Tremor [None]
  - Foot fracture [None]

NARRATIVE: CASE EVENT DATE: 20180107
